FAERS Safety Report 8610279-8 (Version None)
Quarter: 2012Q3

REPORT INFORMATION
  Report Type: 
  Country: None (occurrence: None)
  Receive Date: 20120810
  Receipt Date: 20120810
  Transmission Date: 20120928
  Serious: Yes (Death, Life-Threatening, Hospitalization, Disabling)
  Sender: FDA-Public Use
  Company Number: None

PATIENT
  Sex: Male
  Weight: 84.54 kg

DRUGS (4)
  1. RITUXIMAB [Concomitant]
  2. RITUXIMAB [Suspect]
     Indication: LYMPHOMA
     Dosage: 800 MG, 50 MG/HR, TITRATE, IV DRIP
     Route: 041
     Dates: start: 20120514, end: 20120515
  3. BENDAMUSTINE HYDROCHLORIDE [Suspect]
     Indication: LYMPHOMA
     Dosage: 200 MG, 30 MINX2 DAYS, IV DRIP
     Route: 042
     Dates: start: 20120514, end: 20120515
  4. BENDAMUSTINE HYDROCHLORIDE [Concomitant]

REACTIONS (9)
  - STAPHYLOCOCCAL BACTERAEMIA [None]
  - RENAL IMPAIRMENT [None]
  - PYREXIA [None]
  - BONE MARROW FAILURE [None]
  - ASPERGILLOSIS [None]
  - INFECTION [None]
  - BLOOD TRIGLYCERIDES INCREASED [None]
  - HISTIOCYTOSIS HAEMATOPHAGIC [None]
  - SPLENIC MARGINAL ZONE LYMPHOMA RECURRENT [None]
